FAERS Safety Report 9842573 (Version 1)
Quarter: 2014Q1

REPORT INFORMATION
  Report Type: Spontaneous
  Country: US (occurrence: US)
  Receive Date: 20140124
  Receipt Date: 20140124
  Transmission Date: 20141002
  Serious: No
  Sender: FDA-Public Use
  Company Number: US-GILEAD-2011-0048389

PATIENT
  Age: 69 Year
  Sex: Male

DRUGS (7)
  1. RANEXA [Suspect]
     Indication: PRODUCT USED FOR UNKNOWN INDICATION
     Dosage: 500 MG, BID
  2. PLAVIX                             /01220701/ [Concomitant]
  3. LOTREL [Concomitant]
  4. COREG [Concomitant]
  5. ASA [Concomitant]
  6. ZANTAC [Concomitant]
  7. XANAX [Concomitant]

REACTIONS (4)
  - Palpitations [Unknown]
  - Fatigue [Unknown]
  - Yawning [Unknown]
  - Constipation [Unknown]
